FAERS Safety Report 11102282 (Version 1)
Quarter: 2015Q2

REPORT INFORMATION
  Report Type: Spontaneous
  Country: US (occurrence: None)
  Receive Date: 20150508
  Receipt Date: 20150508
  Transmission Date: 20150821
  Serious: Yes (Death)
  Sender: FDA-Public Use
  Company Number: None

PATIENT
  Age: 62 Year
  Sex: Female

DRUGS (1)
  1. CAPECITABINE 500 MG TEVA PHARMACEUTICALS USA INC [Suspect]
     Active Substance: CAPECITABINE
     Indication: RECTAL CANCER
     Dosage: 1500MG AM BID PO ?1000 MG PM 7 DAYS ON 7 DAYS OFF
     Route: 048
     Dates: start: 20140801, end: 20150223

REACTIONS (1)
  - Death [None]

NARRATIVE: CASE EVENT DATE: 20150401
